FAERS Safety Report 12278694 (Version 10)
Quarter: 2016Q4

REPORT INFORMATION
  Report Type: Spontaneous
  Country: US (occurrence: US)
  Receive Date: 20160418
  Receipt Date: 20161026
  Transmission Date: 20170207
  Serious: Yes (Death, Hospitalization)
  Sender: FDA-Public Use
  Company Number: US-ACTELION-A-US2016-134415

PATIENT
  Age: 64 Year
  Sex: Male
  Weight: 54.97 kg

DRUGS (3)
  1. VELETRI [Suspect]
     Active Substance: EPOPROSTENOL
     Indication: PULMONARY HYPERTENSION
     Dosage: 21 NG/KG, PER MIN
     Route: 042
     Dates: start: 20151002, end: 20161009
  2. VELETRI [Suspect]
     Active Substance: EPOPROSTENOL
     Dosage: 18 NG/KG, PER MIN
     Route: 042
     Dates: start: 20151002
  3. SILDENAFIL. [Concomitant]
     Active Substance: SILDENAFIL

REACTIONS (14)
  - Death [Fatal]
  - Malaise [Unknown]
  - Confusional state [Unknown]
  - Urinary tract infection [Unknown]
  - Catheter site infection [Unknown]
  - Mental status changes [Unknown]
  - Sepsis [Unknown]
  - Transplant evaluation [Unknown]
  - Liver disorder [Unknown]
  - Nausea [Unknown]
  - Abdominal pain [Unknown]
  - Hepatic encephalopathy [Unknown]
  - Weight decreased [Unknown]
  - Seizure [Unknown]

NARRATIVE: CASE EVENT DATE: 20161009
